FAERS Safety Report 7097164-0 (Version None)
Quarter: 2010Q4

REPORT INFORMATION
  Report Type: 
  Country: None (occurrence: None)
  Receive Date: 20101111
  Receipt Date: 20100325
  Transmission Date: 20110411
  Serious: No
  Sender: FDA-Public Use
  Company Number: US-KINGPHARMUSA00001-K201000373

PATIENT
  Age: 20 Year
  Sex: Female
  Weight: 54.422 kg

DRUGS (2)
  1. EMBEDA [Suspect]
     Indication: BACK PAIN
     Dosage: TWO 20 MG DOSES, 2 HOURS APART
     Route: 048
     Dates: start: 20100324
  2. CONTRACEPTIVES NOS [Concomitant]

REACTIONS (3)
  - DRUG INEFFECTIVE [None]
  - PSYCHOMOTOR HYPERACTIVITY [None]
  - RESTLESSNESS [None]
